FAERS Safety Report 19472145 (Version 7)
Quarter: 2021Q4

REPORT INFORMATION
  Report Type: Report from Study
  Country: GB (occurrence: GB)
  Receive Date: 20210629
  Receipt Date: 20211214
  Transmission Date: 20220303
  Serious: Yes (Death, Other)
  Sender: FDA-Public Use
  Company Number: None

PATIENT
  Age: 55 Year
  Sex: Female

DRUGS (32)
  1. CAPECITABINE [Suspect]
     Active Substance: CAPECITABINE
     Indication: Breast cancer
     Dosage: 1300 MILLIGRAM
     Route: 048
     Dates: start: 20201020
  2. DOCETAXEL [Suspect]
     Active Substance: DOCETAXEL
     Indication: Breast cancer
     Dosage: 130 MG, EVERY 3 WEEKS
     Route: 042
     Dates: start: 20170525, end: 20170525
  3. PACLITAXEL [Suspect]
     Active Substance: PACLITAXEL
     Indication: Breast cancer
     Dosage: 375 MG, EVERY 3 WEEK
     Route: 042
     Dates: start: 20170705, end: 20170726
  4. TRASTUZUMAB [Suspect]
     Active Substance: TRASTUZUMAB
     Indication: Product used for unknown indication
     Dosage: 378 MG, EVERY 3 WEEKS
     Route: 042
     Dates: start: 20180516, end: 20190327
  5. PERTUZUMAB [Suspect]
     Active Substance: PERTUZUMAB
     Indication: Product used for unknown indication
     Dosage: 420 MILLIGRAM, Q3WK,LOADING DOSE
     Route: 042
     Dates: start: 20170614, end: 20190327
  6. ABRAXANE [Suspect]
     Active Substance: PACLITAXEL
     Indication: HER2 positive breast cancer
     Dosage: 375 MG, EVERY 3 WEEKS
     Dates: start: 20170705, end: 20170726
  7. ADO-TRASTUZUMAB EMTANSINE [Suspect]
     Active Substance: ADO-TRASTUZUMAB EMTANSINE
     Indication: Breast cancer
     Dosage: 240 MG, EVERY 3 WEEKS
     Route: 042
     Dates: start: 20190427, end: 20190606
  8. POTASSIUM BICARBONATE\POTASSIUM CHLORIDE [Concomitant]
     Active Substance: POTASSIUM BICARBONATE\POTASSIUM CHLORIDE
     Dosage: UNK, BID,FREQ: .5 DAY
     Dates: start: 20170525
  9. TINZAPARIN [Concomitant]
     Active Substance: TINZAPARIN
     Route: 058
     Dates: start: 20170713
  10. TRANEXAMIC ACID [Concomitant]
     Active Substance: TRANEXAMIC ACID
     Dosage: UNK
     Dates: start: 20190722
  11. VANCOMYCIN [Concomitant]
     Active Substance: VANCOMYCIN
     Dosage: 125 MG, 4X/DAY
     Route: 048
     Dates: start: 20201030
  12. ZOLEDRONIC ACID [Concomitant]
     Active Substance: ZOLEDRONIC ACID
     Dosage: 4 MILLIGRAM, EVERY3-4 WEEKS
     Route: 042
     Dates: start: 20170525
  13. CARBOXYMETHYLCELLULOSE SODIUM [Concomitant]
     Active Substance: CARBOXYMETHYLCELLULOSE SODIUM
     Dosage: UNK, 4X/DAY
     Route: 060
     Dates: start: 20170526
  14. AMITRIPTYLINE HYDROCHLORIDE [Concomitant]
     Active Substance: AMITRIPTYLINE HYDROCHLORIDE
     Indication: Depressed mood
     Dosage: 5 MG, 1X/DAY
     Route: 048
     Dates: start: 20190827
  15. AMOXICILLIN [Concomitant]
     Active Substance: AMOXICILLIN
     Indication: Abdominal pain
     Dosage: 625 MG, 3X/DAY
     Route: 048
     Dates: start: 20201211, end: 20201216
  16. AMOXICILLIN [Concomitant]
     Active Substance: AMOXICILLIN
     Indication: Pyrexia
  17. APIXABAN [Concomitant]
     Active Substance: APIXABAN
     Dosage: FREQ:.5 D
     Route: 048
     Dates: start: 20190819, end: 20190917
  18. CALCIUM\CHOLECALCIFEROL [Concomitant]
     Active Substance: CALCIUM\CHOLECALCIFEROL
     Dosage: UNK UNK, 3X/DAY
     Route: 048
     Dates: start: 20170525
  19. CETIRIZINE [Concomitant]
     Active Substance: CETIRIZINE HYDROCHLORIDE
     Dosage: 10 MG, 1X/DAY
     Route: 048
     Dates: start: 20190313
  20. CHLORHEXIDINE GLUCONATE [Concomitant]
     Active Substance: CHLORHEXIDINE GLUCONATE
     Dosage: 10 ML FREQ:.25 D
     Route: 061
     Dates: start: 20170525
  21. CHLORPHENIRAMINE MALEATE [Concomitant]
     Active Substance: CHLORPHENIRAMINE MALEATE
     Dosage: 4 MG FREQ:.25 D
     Route: 048
     Dates: start: 20170526
  22. CLOBETASOL PROPIONATE [Concomitant]
     Active Substance: CLOBETASOL PROPIONATE
     Dosage: UNK UNK, 2X/DAY
     Route: 061
     Dates: start: 20170210
  23. DOMPERIDONE [Concomitant]
     Active Substance: DOMPERIDONE
     Dosage: 10 MG FREQ:.33 D
     Route: 048
     Dates: start: 20170523
  24. FUSIDIC ACID [Concomitant]
     Active Substance: FUSIDIC ACID
     Dosage: UNK
     Dates: start: 201905
  25. CYCLOSPORINE [Concomitant]
     Active Substance: CYCLOSPORINE
     Dosage: UNK
     Route: 047
     Dates: start: 201708
  26. LANSOPRAZOLE [Concomitant]
     Active Substance: LANSOPRAZOLE
     Dosage: 30 MG, 1X/DAY
     Route: 048
     Dates: start: 20190730
  27. LOPERAMIDE [Concomitant]
     Active Substance: LOPERAMIDE
     Dosage: PRN (ASNEEDED)
     Route: 048
     Dates: start: 20170613
  28. METRONIDAZOLE [Concomitant]
     Active Substance: METRONIDAZOLE
     Dosage: 400 MG, MONTHLY
     Route: 048
     Dates: start: 20201116, end: 202011
  29. METRONIDAZOLE [Concomitant]
     Active Substance: METRONIDAZOLE
     Dosage: UNK
     Dates: start: 20200909, end: 20200914
  30. ACETAMINOPHEN [Concomitant]
     Active Substance: ACETAMINOPHEN
     Dosage: 1 INTERNATIONAL UNIT
     Route: 048
     Dates: start: 20170525
  31. Artificial Saliva [Concomitant]
     Dosage: UNK, EVERY 0.25 DAY
     Route: 060
     Dates: start: 20170526
  32. CLOBETASOL [Concomitant]
     Active Substance: CLOBETASOL
     Indication: Urticaria papular
     Dosage: 0.1 %, DAILY

REACTIONS (6)
  - Biliary sepsis [Recovered/Resolved]
  - Device related infection [Not Recovered/Not Resolved]
  - Tenosynovitis [Recovered/Resolved]
  - Neoplasm progression [Fatal]
  - Sinus tachycardia [Unknown]
  - Epistaxis [Not Recovered/Not Resolved]

NARRATIVE: CASE EVENT DATE: 20190401
